FAERS Safety Report 21756075 (Version 1)
Quarter: 2022Q4

REPORT INFORMATION
  Report Type: Spontaneous
  Country: FR (occurrence: FR)
  Receive Date: 20221220
  Receipt Date: 20221220
  Transmission Date: 20230113
  Serious: Yes (Life-Threatening, Other)
  Sender: FDA-Public Use
  Company Number: None

PATIENT
  Sex: Female

DRUGS (5)
  1. ATRACURIUM [Suspect]
     Active Substance: ATRACURIUM
     Indication: General anaesthesia
     Dosage: 1 DOSAGE FORM, TOTAL
     Route: 042
     Dates: start: 2012, end: 2012
  2. PROPOFOL [Suspect]
     Active Substance: PROPOFOL
     Indication: General anaesthesia
     Dosage: 1 DOSAGE FORM, TOTAL
     Route: 042
     Dates: start: 2012, end: 2012
  3. SUFENTANIL [Suspect]
     Active Substance: SUFENTANIL
     Indication: General anaesthesia
     Dosage: 1 DOSAGE FORM, TOTAL
     Route: 042
     Dates: start: 2012, end: 2012
  4. KETAMINE [Suspect]
     Active Substance: KETAMINE
     Indication: General anaesthesia
     Dosage: 1 DOSAGE , TOTAL
     Route: 042
     Dates: start: 2012, end: 2012
  5. CLINDAMYCIN HYDROCHLORIDE [Suspect]
     Active Substance: CLINDAMYCIN HYDROCHLORIDE
     Indication: General anaesthesia
     Dosage: 1 DOSAGE FORM, TOTAL
     Route: 042
     Dates: start: 2012, end: 2012

REACTIONS (2)
  - Anaphylactic reaction [Recovered/Resolved]
  - Allergy test negative [Recovered/Resolved]

NARRATIVE: CASE EVENT DATE: 20120101
